FAERS Safety Report 9701486 (Version 1)
Quarter: 2013Q4

REPORT INFORMATION
  Report Type: Spontaneous
  Country: US (occurrence: None)
  Receive Date: 20131120
  Receipt Date: 20131120
  Transmission Date: 20140711
  Serious: No
  Sender: FDA-Public Use
  Company Number: None

PATIENT
  Age: 48 Year
  Sex: Female
  Weight: 68.04 kg

DRUGS (1)
  1. BUPROPRION [Suspect]
     Indication: DEPRESSION
     Route: 048

REACTIONS (6)
  - Alopecia [None]
  - Alopecia [None]
  - Therapy cessation [None]
  - Depression [None]
  - Disease recurrence [None]
  - Stress [None]
